FAERS Safety Report 13218927 (Version 1)
Quarter: 2017Q1

REPORT INFORMATION
  Report Type: Other
  Country: GB (occurrence: US)
  Receive Date: 20170210
  Receipt Date: 20170210
  Transmission Date: 20170428
  Serious: Yes (Other)
  Sender: FDA-Public Use
  Company Number: US-INTERNATIONAL MEDICATION SYSTEMS, LIMITED-1062987

PATIENT
  Age: 56 Year
  Sex: Female

DRUGS (1)
  1. LIDOCAINE 1.5% [Suspect]
     Active Substance: LIDOCAINE
     Indication: NERVE BLOCK

REACTIONS (3)
  - Neuromuscular blockade [Recovered/Resolved]
  - Administration site extravasation [Unknown]
  - Hypotension [Recovered/Resolved]
